FAERS Safety Report 9735878 (Version 1)
Quarter: 2013Q4

REPORT INFORMATION
  Report Type: Spontaneous
  Country: US (occurrence: US)
  Receive Date: 20131206
  Receipt Date: 20131206
  Transmission Date: 20140711
  Serious: No
  Sender: FDA-Public Use
  Company Number: US-GILEAD-2009-0024256

PATIENT
  Age: 64 Year
  Sex: Female
  Weight: 61.23 kg

DRUGS (3)
  1. LETAIRIS [Suspect]
     Indication: PULMONARY ARTERIAL HYPERTENSION
     Route: 048
     Dates: start: 20090630, end: 20090911
  2. PRILOSEC [Concomitant]
  3. PROCARDIA XL [Concomitant]

REACTIONS (3)
  - Swelling face [Unknown]
  - Oedema peripheral [Unknown]
  - Dyspnoea [Unknown]
